FAERS Safety Report 15539820 (Version 2)
Quarter: 2018Q4

REPORT INFORMATION
  Report Type: Spontaneous
  Country: US (occurrence: US)
  Receive Date: 20181023
  Receipt Date: 20181029
  Transmission Date: 20190205
  Serious: Yes (Other)
  Sender: FDA-Public Use
  Company Number: US-CIPLA LTD.-2018US21917

PATIENT

DRUGS (9)
  1. PLAQUENIL                          /00072602/ [Concomitant]
     Active Substance: HYDROXYCHLOROQUINE DIPHOSPHATE
     Indication: SLE ARTHRITIS
     Dosage: 200 MG, BID (1 IN THE MORNING AND 1 IN THE EVENING, TWICE A DAY, WITH FOOD)
     Route: 065
  2. CYCLOBENZAPRINE. [Concomitant]
     Active Substance: CYCLOBENZAPRINE
     Indication: FIBROMYALGIA
     Dosage: 10 MG, QD
     Route: 065
     Dates: start: 2008
  3. METOPROLOL. [Concomitant]
     Active Substance: METOPROLOL
     Indication: BLOOD PRESSURE ABNORMAL
     Dosage: 25 MG, BID (1 IN THE MORNING AND 1 IN THE EVENING, TWICE A DAY)
     Route: 065
     Dates: start: 2008
  4. ESCITALOPRAM [Concomitant]
     Active Substance: ESCITALOPRAM OXALATE
     Indication: ANTIDEPRESSANT THERAPY
     Dosage: 20 MG, QD
     Route: 065
     Dates: start: 2007
  5. DAYPRO [Concomitant]
     Active Substance: OXAPROZIN
     Indication: SLE ARTHRITIS
     Dosage: UNK
     Route: 065
  6. ENALAPRIL MALEATE. [Concomitant]
     Active Substance: ENALAPRIL MALEATE
     Indication: BLOOD PRESSURE ABNORMAL
     Dosage: 2.5 MG, QD
     Route: 065
     Dates: start: 2008
  7. SPIRONOLACTONE. [Concomitant]
     Active Substance: SPIRONOLACTONE
     Indication: BLOOD PRESSURE ABNORMAL
     Dosage: 100 MG, BID
     Route: 065
     Dates: start: 2008
  8. MELOXICAM. [Suspect]
     Active Substance: MELOXICAM
     Indication: SYSTEMIC LUPUS ERYTHEMATOSUS
     Dosage: 15 MG, QD (STOPPED WITHIN 2 WEEKS OF EVENT START DATE)
     Route: 048
     Dates: start: 201808, end: 201808
  9. DAYPRO [Concomitant]
     Active Substance: OXAPROZIN
     Dosage: 600 MG, BID (1 IN THE MORNING AND 1 IN THE EVENING, TWICE A DAY, WITH FOOD)
     Route: 065

REACTIONS (5)
  - Stomatitis [Unknown]
  - Hypersensitivity [Unknown]
  - Blindness [Recovering/Resolving]
  - Macular degeneration [Recovering/Resolving]
  - Eye haemorrhage [Recovering/Resolving]

NARRATIVE: CASE EVENT DATE: 201808
